FAERS Safety Report 9733250 (Version 2)
Quarter: 2017Q3

REPORT INFORMATION
  Report Type: Spontaneous
  Country: GB (occurrence: GB)
  Receive Date: 20131205
  Receipt Date: 20170828
  Transmission Date: 20171128
  Serious: Yes (Death, Other)
  Sender: FDA-Public Use
  Company Number: GB-TEVA-447167ISR

PATIENT
  Age: 35 Year
  Weight: 79 kg

DRUGS (12)
  1. PAROXETINE. [Interacting]
     Active Substance: PAROXETINE
     Indication: DEPRESSED MOOD
     Dosage: 20 MILLIGRAM DAILY; 20 MG, QD
     Route: 048
  2. BUSCOPAN [Suspect]
     Active Substance: BUTYLSCOPOLAMINE BROMIDE
     Indication: SALIVARY HYPERSECRETION
     Dosage: 600 MICROGRAM DAILY; 300 UG, BID
     Route: 048
  3. ALCOHOL. [Interacting]
     Active Substance: ALCOHOL
     Dosage: UNK
     Route: 048
  4. COCODAMOL [Concomitant]
     Active Substance: ACETAMINOPHEN\CODEINE PHOSPHATE
     Indication: BACK PAIN
     Dosage: UNK
     Dates: start: 201304
  5. ZOPICLONE [Interacting]
     Active Substance: ZOPICLONE
     Indication: INSOMNIA
     Dosage: 3.75 MILLIGRAM DAILY; 3.75 MG, QD (NOCTE)
     Route: 048
     Dates: start: 2007
  6. SENNA PLUS [Concomitant]
     Active Substance: DOCUSATE SODIUM\SENNOSIDES\SENNOSIDES A AND B
     Indication: CONSTIPATION
     Dosage: 2 DOSAGE FORMS DAILY; 2 DF, QD
     Route: 048
  7. LANSOPRAZOLE. [Concomitant]
     Active Substance: LANSOPRAZOLE
     Indication: ABDOMINAL PAIN UPPER
     Dosage: 30 MILLIGRAM DAILY; 30 MG, QD
     Route: 048
  8. PROCYCLIDINE [Concomitant]
     Active Substance: PROCYCLIDINE
     Indication: EXTRAPYRAMIDAL DISORDER
     Dosage: 10 MILLIGRAM DAILY; 5 MG, BID
     Route: 048
     Dates: start: 2007
  9. DIAZEPAM. [Suspect]
     Active Substance: DIAZEPAM
     Indication: ANXIETY
     Dosage: 2.5 MILLIGRAM DAILY; 2.5 MG, QD
     Route: 048
     Dates: start: 2007
  10. EPILIM [Suspect]
     Active Substance: VALPROATE SODIUM
     Dosage: 400 MILLIGRAM DAILY; 200 MG, BID
     Route: 048
     Dates: start: 2007
  11. ZAPONEX [Interacting]
     Active Substance: CLOZAPINE
     Indication: SCHIZOPHRENIA
     Dosage: 550 MILLIGRAM DAILY; 550 MG, DAILY (NOCTE)
     Route: 048
     Dates: start: 20070219, end: 20130507
  12. ZAPONEX [Interacting]
     Active Substance: CLOZAPINE
     Dosage: UNK
     Route: 048
     Dates: start: 20041112, end: 200702

REACTIONS (7)
  - Toxicity to various agents [Fatal]
  - Arteriosclerosis [Not Recovered/Not Resolved]
  - Gastritis erosive [Not Recovered/Not Resolved]
  - Lower respiratory tract infection [Not Recovered/Not Resolved]
  - Pulmonary oedema [Not Recovered/Not Resolved]
  - Drug interaction [Not Recovered/Not Resolved]
  - Alcohol interaction [Not Recovered/Not Resolved]

NARRATIVE: CASE EVENT DATE: 20130507
